FAERS Safety Report 7970659-0 (Version None)
Quarter: 2011Q4

REPORT INFORMATION
  Report Type: 
  Country: None (occurrence: None)
  Receive Date: 20111212
  Receipt Date: 20111207
  Transmission Date: 20120403
  Serious: Yes (Death, Other)
  Sender: FDA-Public Use
  Company Number: PHHY2011CA94459

PATIENT

DRUGS (1)
  1. MEDROXYPROGESTERONE [Suspect]
     Route: 064

REACTIONS (3)
  - HYDROPS FOETALIS [None]
  - HEART RATE INCREASED [None]
  - MATERNAL EXPOSURE DURING PREGNANCY [None]
